FAERS Safety Report 23263140 (Version 1)
Quarter: 2023Q4

REPORT INFORMATION
  Report Type: Spontaneous
  Country: US (occurrence: US)
  Receive Date: 20231205
  Receipt Date: 20231205
  Transmission Date: 20240110
  Serious: No
  Sender: FDA-Public Use
  Company Number: US-STRIDES ARCOLAB LIMITED-2023SP007482

PATIENT
  Sex: Female

DRUGS (1)
  1. GABAPENTIN [Interacting]
     Active Substance: GABAPENTIN
     Indication: Product used for unknown indication
     Dosage: UNK, CAPSULES
     Route: 065

REACTIONS (5)
  - Cerebral disorder [Unknown]
  - Blood pressure decreased [Unknown]
  - Disorientation [Unknown]
  - Drug interaction [Unknown]
  - Product dispensing error [Unknown]
